FAERS Safety Report 5943348-1 (Version None)
Quarter: 2008Q4

REPORT INFORMATION
  Report Type: 
  Country: None (occurrence: None)
  Receive Date: 20081105
  Receipt Date: 20081105
  Transmission Date: 20090506
  Serious: No
  Sender: FDA-Public Use
  Company Number: None

PATIENT

DRUGS (2)
  1. VARENICLINE [Suspect]
     Dosage: 0.5 MG BID PO
     Route: 048
     Dates: start: 20071115
  2. VARENICLINE [Suspect]
     Dosage: 1 MG BID PO
     Route: 048
     Dates: start: 20080130, end: 20080505

REACTIONS (10)
  - ABNORMAL BEHAVIOUR [None]
  - ANHEDONIA [None]
  - DEPRESSED MOOD [None]
  - DEPRESSION [None]
  - HALLUCINATION [None]
  - HYPNAGOGIC HALLUCINATION [None]
  - INSOMNIA [None]
  - IRRITABILITY [None]
  - NIGHTMARE [None]
  - PARANOIA [None]
